FAERS Safety Report 19200865 (Version 1)
Quarter: 2021Q2

REPORT INFORMATION
  Report Type: Spontaneous
  Country: US (occurrence: US)
  Receive Date: 20210430
  Receipt Date: 20210430
  Transmission Date: 20210717
  Serious: No
  Sender: FDA-Public Use
  Company Number: US-SA-2021SA143333

PATIENT
  Age: 24 Year
  Sex: Female

DRUGS (10)
  1. CEREZYME [Suspect]
     Active Substance: IMIGLUCERASE
     Indication: GAUCHER^S DISEASE
     Dosage: 3200 U, QOW
     Route: 042
     Dates: start: 20190220
  2. NORMAL SALINE [Concomitant]
     Active Substance: SODIUM CHLORIDE
  3. EPINEPHRINE. [Concomitant]
     Active Substance: EPINEPHRINE
  4. DIPHENHYDRAMINE. [Concomitant]
     Active Substance: DIPHENHYDRAMINE
  5. STERILE WATER [Concomitant]
     Active Substance: WATER
  6. MULTIVITAMINS [VITAMINS NOS] [Concomitant]
     Active Substance: VITAMINS
  7. MELOXICAM. [Concomitant]
     Active Substance: MELOXICAM
  8. CYCLOBENZAPRINE. [Concomitant]
     Active Substance: CYCLOBENZAPRINE
  9. HEPARIN [Concomitant]
     Active Substance: HEPARIN SODIUM
  10. SOLU?CORTEF [Concomitant]
     Active Substance: HYDROCORTISONE SODIUM SUCCINATE

REACTIONS (1)
  - COVID-19 [Recovered/Resolved]

NARRATIVE: CASE EVENT DATE: 202104
